FAERS Safety Report 4323822-4 (Version None)
Quarter: 2004Q1

REPORT INFORMATION
  Report Type: 
  Country: None (occurrence: None)
  Receive Date: 20040326
  Receipt Date: 20040121
  Transmission Date: 20041129
  Serious: Yes (Death, Hospitalization, Other)
  Sender: FDA-Public Use
  Company Number: 200410202EU

PATIENT
  Age: 68 Year
  Sex: Male

DRUGS (4)
  1. ENOXAPARIN SODIUM [Suspect]
     Indication: THROMBOPHLEBITIS
     Route: 058
     Dates: start: 20031114, end: 20040110
  2. MEDROL [Concomitant]
     Route: 048
  3. PARIET [Concomitant]
     Route: 048
  4. DARBEPOETIN ALFA [Concomitant]

REACTIONS (7)
  - ANAEMIA [None]
  - INJECTION SITE HAEMORRHAGE [None]
  - PULMONARY CONGESTION [None]
  - RESPIRATORY FAILURE [None]
  - THROMBOCYTOPENIA [None]
  - THROMBOPHLEBITIS [None]
  - THROMBOSIS [None]
